FAERS Safety Report 13257182 (Version 1)
Quarter: 2017Q1

REPORT INFORMATION
  Report Type: Report from Study
  Country: US (occurrence: US)
  Receive Date: 20170221
  Receipt Date: 20170221
  Transmission Date: 20170428
  Serious: Yes (Hospitalization, Other)
  Sender: FDA-Public Use
  Company Number: US-PFIZER INC-2017072788

PATIENT
  Age: 59 Year
  Sex: Female

DRUGS (1)
  1. IBRANCE [Suspect]
     Active Substance: PALBOCICLIB
     Indication: BREAST CANCER
     Dosage: 125 MG, CYCLIC [DAILY FOR DAY 1- DAY21 FOLLOWED BY 7DAYS OFF (ILLEGIBLE) 28 DAYS]
     Route: 048
     Dates: start: 20160512

REACTIONS (6)
  - Diarrhoea [Unknown]
  - Fatigue [Unknown]
  - Bone marrow failure [Unknown]
  - Nausea [Unknown]
  - Depression [Unknown]
  - Pancreatitis [Unknown]
